FAERS Safety Report 8512139-X (Version None)
Quarter: 2012Q3

REPORT INFORMATION
  Report Type: 
  Country: None (occurrence: None)
  Receive Date: 20120716
  Receipt Date: 20120706
  Transmission Date: 20120928
  Serious: Yes (Hospitalization)
  Sender: FDA-Public Use
  Company Number: BR-ASTRAZENECA-2012SE47132

PATIENT
  Age: 60 Year
  Sex: Male
  Weight: 75 kg

DRUGS (6)
  1. NEXIUM [Suspect]
     Indication: GASTROOESOPHAGEAL REFLUX DISEASE
     Route: 048
     Dates: start: 20090101, end: 20120601
  2. OMEPRAZOLE [Suspect]
     Indication: OESOPHAGEAL ACHALASIA
     Route: 048
     Dates: start: 20090101
  3. NEXIUM [Suspect]
     Indication: OESOPHAGEAL ACHALASIA
     Route: 048
     Dates: start: 20090101, end: 20120601
  4. OMEPRAZOLE [Suspect]
     Indication: GASTROOESOPHAGEAL REFLUX DISEASE
     Route: 048
     Dates: start: 20090101
  5. NEXIUM [Suspect]
     Route: 048
  6. NEXIUM [Suspect]
     Route: 048

REACTIONS (1)
  - DYSPHAGIA [None]
